FAERS Safety Report 12313853 (Version 1)
Quarter: 2016Q2

REPORT INFORMATION
  Report Type: Other
  Country: PE (occurrence: PE)
  Receive Date: 20160428
  Receipt Date: 20160428
  Transmission Date: 20160815
  Serious: Yes (Hospitalization, Other)
  Sender: FDA-Public Use
  Company Number: PE-APOTEX-2016AP008080

PATIENT
  Age: 33 Year
  Sex: Female

DRUGS (1)
  1. PAXIL [Suspect]
     Active Substance: PAROXETINE HYDROCHLORIDE
     Indication: DEPRESSION
     Dosage: 20 MG, QD
     Route: 048
     Dates: start: 20140726

REACTIONS (6)
  - Abdominal pain upper [Unknown]
  - Breast cancer [Unknown]
  - Postoperative wound infection [Unknown]
  - Chronic gastritis [Not Recovered/Not Resolved]
  - Nausea [Not Recovered/Not Resolved]
  - Pancreatitis [Unknown]
